FAERS Safety Report 13062611 (Version 1)
Quarter: 2016Q4

REPORT INFORMATION
  Report Type: Spontaneous
  Country: US (occurrence: US)
  Receive Date: 20161226
  Receipt Date: 20161226
  Transmission Date: 20170207
  Serious: No
  Sender: FDA-Public Use
  Company Number: US-ASTRAZENECA-2016SF26893

PATIENT
  Sex: Female

DRUGS (20)
  1. LIPITOR [Suspect]
     Active Substance: ATORVASTATIN CALCIUM
     Route: 065
  2. FLONASE [Concomitant]
     Active Substance: FLUTICASONE PROPIONATE
     Dosage: 60 UG/ACTUATION
  3. HYDRODIURIL [Concomitant]
     Active Substance: HYDROCHLOROTHIAZIDE
  4. ARIMIDEX [Suspect]
     Active Substance: ANASTROZOLE
     Route: 048
     Dates: start: 201402
  5. PRILOSEC [Suspect]
     Active Substance: OMEPRAZOLE MAGNESIUM
     Route: 048
  6. AROMASIN [Suspect]
     Active Substance: EXEMESTANE
     Route: 048
  7. COZAAR [Concomitant]
     Active Substance: LOSARTAN POTASSIUM
  8. RELAFEN [Concomitant]
     Active Substance: NABUMETONE
  9. VITAMIN E [Concomitant]
     Active Substance: .ALPHA.-TOCOPHEROL
     Dosage: 400 UNITS
  10. NORCO [Concomitant]
     Active Substance: ACETAMINOPHEN\HYDROCODONE BITARTRATE
     Dosage: 5-325 MG
  11. MYCOSTATIN [Concomitant]
     Active Substance: NYSTATIN
  12. CELESTONE SOLUSPAN [Concomitant]
     Active Substance: BETAMETHASONE ACETATE\BETAMETHASONE SODIUM PHOSPHATE
     Dosage: 6 MG/ML
  13. KLONOPIN [Concomitant]
     Active Substance: CLONAZEPAM
  14. CATAPRES [Concomitant]
     Active Substance: CLONIDINE HYDROCHLORIDE
  15. VITAMIN D3 [Concomitant]
     Active Substance: CHOLECALCIFEROL
     Dosage: 1000 UNITS
  16. LOFIBRA/TRIGLIDE [Concomitant]
  17. DITROPAN [Concomitant]
     Active Substance: OXYBUTYNIN CHLORIDE
  18. ASPIRIN. [Concomitant]
     Active Substance: ASPIRIN
     Route: 048
  19. LEVOTHROID [Concomitant]
     Active Substance: LEVOTHYROXINE SODIUM
  20. CRESTOR [Suspect]
     Active Substance: ROSUVASTATIN CALCIUM
     Route: 048

REACTIONS (8)
  - Hypothyroidism [Unknown]
  - Glucose tolerance impaired [Unknown]
  - Drug hypersensitivity [Unknown]
  - Depression [Unknown]
  - Arthralgia [Unknown]
  - Hypertension [Unknown]
  - Hyperlipidaemia [Unknown]
  - Arthritis [Unknown]
